FAERS Safety Report 21865675 (Version 1)
Quarter: 2023Q1

REPORT INFORMATION
  Report Type: Spontaneous
  Country: DE (occurrence: DE)
  Receive Date: 20230116
  Receipt Date: 20230116
  Transmission Date: 20230418
  Serious: Yes (Death, Life-Threatening, Hospitalization, Other)
  Sender: FDA-Public Use
  Company Number: DE-MLMSERVICE-20230105-4013812-1

PATIENT
  Age: 16 Year
  Sex: Male

DRUGS (9)
  1. TACROLIMUS [Interacting]
     Active Substance: TACROLIMUS
     Indication: Prophylaxis against graft versus host disease
     Dosage: UNK
  2. VORICONAZOLE [Interacting]
     Active Substance: VORICONAZOLE
     Indication: Fusarium infection
     Dosage: MAINTENANCE THERAPY, 4 MILLIGRAM PER KILOGRAM
     Route: 042
  3. VORICONAZOLE [Interacting]
     Active Substance: VORICONAZOLE
     Dosage: LOADING DOSE, 6 MG/KG, BID
     Route: 042
  4. VORICONAZOLE [Interacting]
     Active Substance: VORICONAZOLE
     Dosage: 12 MG/KG, BID
     Route: 042
  5. MICAFUNGIN [Concomitant]
     Active Substance: MICAFUNGIN
     Indication: Cytomegalovirus infection
     Dosage: 50 MILLIGRAM, QD
  6. AMPHOTERICIN B [Concomitant]
     Active Substance: AMPHOTERICIN B
     Indication: Fusarium infection
     Dosage: 5 MG/KG, QD
  7. AMPHOTERICIN B [Concomitant]
     Active Substance: AMPHOTERICIN B
     Dosage: 3 MG/KG, QD
  8. FOSCARNET [Concomitant]
     Active Substance: FOSCARNET
     Indication: Cytomegalovirus infection
     Dosage: UNK
     Route: 042
  9. METHOTREXATE [Concomitant]
     Active Substance: METHOTREXATE
     Indication: Prophylaxis against graft versus host disease
     Dosage: ON DAY +2, +4, +7, 10 MG/M3

REACTIONS (17)
  - Cerebral ischaemia [Fatal]
  - Splenic rupture [Unknown]
  - Pulmonary oedema [Unknown]
  - Inflammatory marker increased [Unknown]
  - Capillary leak syndrome [Unknown]
  - Intracardiac thrombus [Unknown]
  - Drug ineffective [Unknown]
  - Hypovolaemic shock [Unknown]
  - Hemiparesis [Unknown]
  - Fungal endocarditis [Unknown]
  - Drug interaction [Unknown]
  - Acute kidney injury [Unknown]
  - Embolic cerebral infarction [Unknown]
  - Oedema peripheral [Unknown]
  - Pyrexia [Unknown]
  - Product use issue [Unknown]
  - Off label use [Unknown]
